FAERS Safety Report 7072440-6 (Version None)
Quarter: 2010Q4

REPORT INFORMATION
  Report Type: 
  Country: None (occurrence: None)
  Receive Date: 20101029
  Receipt Date: 20100413
  Transmission Date: 20110411
  Serious: No
  Sender: FDA-Public Use
  Company Number: A0841686A

PATIENT
  Age: 82 Year
  Sex: Female
  Weight: 68.2 kg

DRUGS (3)
  1. ADVAIR DISKUS 100/50 [Suspect]
     Indication: CHRONIC OBSTRUCTIVE PULMONARY DISEASE
     Route: 055
     Dates: start: 20100101, end: 20100108
  2. SYMBICORT [Concomitant]
     Dates: start: 20091201, end: 20100101
  3. OXYGEN [Concomitant]

REACTIONS (4)
  - DRUG HYPERSENSITIVITY [None]
  - LIP SWELLING [None]
  - ORAL HERPES [None]
  - STOMATITIS [None]
